FAERS Safety Report 6190179-6 (Version None)
Quarter: 2009Q2

REPORT INFORMATION
  Report Type: 
  Country: None (occurrence: None)
  Receive Date: 20090514
  Receipt Date: 20090508
  Transmission Date: 20091009
  Serious: No
  Sender: FDA-Public Use
  Company Number: CA-ELI_LILLY_AND_COMPANY-CA200903000962

PATIENT
  Sex: Female

DRUGS (17)
  1. FORTEO [Suspect]
     Indication: OSTEOPOROSIS
     Dosage: 20 UG, DAILY (1/D)
     Route: 058
     Dates: start: 20080926
  2. PREDNISONE [Concomitant]
     Dosage: 5 MG, 2/D
  3. NEXIUM [Concomitant]
     Dosage: 40 MG, 2/D
  4. APO-K [Concomitant]
     Dosage: 500 MG, UNK
  5. DILTIAZEM [Concomitant]
     Dosage: 120 MG, DAILY (1/D)
  6. LANOXIN [Concomitant]
     Dosage: 0.125 MG, DAILY (1/D)
  7. FUROSEMIDE [Concomitant]
  8. SPIRIVA [Concomitant]
     Dosage: 18 UG, UNK
  9. DICETEL [Concomitant]
  10. NITRO                              /00003201/ [Concomitant]
     Dosage: 0.4 MG, UNK
  11. SYNTHROID [Concomitant]
     Dosage: 0.5 MG, DAILY (1/D)
  12. PHENAZO [Concomitant]
     Dosage: 200 MG, 3/D
  13. FLUCONAZOLE [Concomitant]
     Dosage: 150 MG, 2/D
  14. NOVO-DOCUSATE [Concomitant]
     Dosage: 100 MG, UNK
  15. EFFEXOR [Concomitant]
     Dosage: 37.5 MG, UNK
  16. EFFEXOR [Concomitant]
     Dosage: 75 MG, UNK
  17. CREON [Concomitant]
     Dosage: UNK, 3/D

REACTIONS (4)
  - EOSINOPHILIC OESOPHAGITIS [None]
  - MALAISE [None]
  - OEDEMA PERIPHERAL [None]
  - WHEEZING [None]
